FAERS Safety Report 22018079 (Version 1)
Quarter: 2023Q1

REPORT INFORMATION
  Report Type: Spontaneous
  Country: US (occurrence: US)
  Receive Date: 20230221
  Receipt Date: 20230221
  Transmission Date: 20230418
  Serious: No
  Sender: FDA-Public Use
  Company Number: US-MYLANLABS-2023M1016578

PATIENT
  Sex: Female

DRUGS (1)
  1. ESTRADIOL TRANSDERMAL SYSTEM [Suspect]
     Active Substance: ESTRADIOL
     Indication: Product used for unknown indication
     Dosage: 0.1 MILLIGRAM, QD (ONCE-WEEKLY)
     Route: 062

REACTIONS (3)
  - Weight decreased [Recovered/Resolved]
  - Product odour abnormal [Recovered/Resolved]
  - Drug dose titration not performed [Unknown]
